FAERS Safety Report 13304413 (Version 4)
Quarter: 2018Q2

REPORT INFORMATION
  Report Type: Report from Study
  Country: FR (occurrence: FR)
  Receive Date: 20170308
  Receipt Date: 20180525
  Transmission Date: 20180711
  Serious: Yes (Hospitalization, Other)
  Sender: FDA-Public Use
  Company Number: FR-BRISTOL-MYERS SQUIBB COMPANY-BMS-2016-110598

PATIENT
  Age: 73 Year
  Sex: Female
  Weight: 60 kg

DRUGS (10)
  1. PROPANOLOL                         /00030001/ [Concomitant]
     Active Substance: PROPRANOLOL HYDROCHLORIDE
     Indication: PREMEDICATION
     Dosage: 1 TAB, UNK
     Route: 065
     Dates: start: 2014
  2. TRIMEBUTINE [Concomitant]
     Active Substance: TRIMEBUTINE
     Indication: PREMEDICATION
     Dosage: 1 TAB, UNK
     Route: 065
     Dates: start: 20160825
  3. NIVOLUMAB [Suspect]
     Active Substance: NIVOLUMAB
     Indication: METASTATIC MALIGNANT MELANOMA
     Dosage: UNK
     Route: 042
     Dates: start: 20160916
  4. DOLIPRANE [Concomitant]
     Active Substance: ACETAMINOPHEN
     Indication: PREMEDICATION
     Dosage: 4 G, UNK
     Route: 065
     Dates: start: 201606
  5. KARDEGIC [Concomitant]
     Active Substance: ASPIRIN DL-LYSINE
     Indication: PREMEDICATION
     Dosage: 75 MG, UNK
     Route: 065
     Dates: start: 2014
  6. SODIUM BICARBONATE. [Concomitant]
     Active Substance: SODIUM BICARBONATE
     Indication: ADVERSE EVENT
     Dosage: UNK
     Route: 065
     Dates: start: 20160917
  7. IPILIMUMAB [Suspect]
     Active Substance: IPILIMUMAB
     Indication: METASTATIC MALIGNANT MELANOMA
     Dosage: UNK
     Route: 042
     Dates: start: 20160916
  8. TWYNSTA [Concomitant]
     Active Substance: AMLODIPINE BESYLATE\TELMISARTAN
     Indication: PREMEDICATION
     Dosage: UNK
     Route: 065
     Dates: start: 20161202
  9. INTERFERON [Concomitant]
     Active Substance: INTERFERON
     Indication: PREMEDICATION
     Dosage: UNK
     Route: 065
     Dates: start: 2013, end: 201405
  10. ECONAZOLE [Concomitant]
     Active Substance: ECONAZOLE
     Indication: ADVERSE EVENT
     Dosage: UNK
     Route: 065
     Dates: start: 20161028

REACTIONS (1)
  - Adrenocorticotropic hormone deficiency [Recovered/Resolved]

NARRATIVE: CASE EVENT DATE: 20161226
